FAERS Safety Report 5499407-3 (Version None)
Quarter: 2007Q4

REPORT INFORMATION
  Report Type: 
  Country: None (occurrence: None)
  Receive Date: 20071026
  Receipt Date: 20071016
  Transmission Date: 20080405
  Serious: Yes (Life-Threatening, Hospitalization)
  Sender: FDA-Public Use
  Company Number: B0491505A

PATIENT
  Age: 33 Year
  Sex: Female

DRUGS (3)
  1. LAMICTAL [Suspect]
     Indication: BIPOLAR II DISORDER
     Dosage: 50MG PER DAY
     Route: 048
     Dates: start: 20070216, end: 20070308
  2. CIPRALEX [Concomitant]
     Indication: DEPRESSION
     Dosage: 20MG PER DAY
     Route: 048
  3. ATARAX [Concomitant]
     Indication: INSOMNIA
     Route: 048
     Dates: start: 20061201, end: 20070301

REACTIONS (3)
  - AGRANULOCYTOSIS [None]
  - PHARYNGITIS BACTERIAL [None]
  - SKIN INFECTION [None]
